FAERS Safety Report 9051425 (Version 1)
Quarter: 2013Q1

REPORT INFORMATION
  Report Type: Spontaneous
  Country: US (occurrence: US)
  Receive Date: 20130206
  Receipt Date: 20130206
  Transmission Date: 20140127
  Serious: No
  Sender: FDA-Public Use
  Company Number: US-ALLERGAN-1208869US

PATIENT
  Age: 66 Year
  Sex: Male

DRUGS (8)
  1. RESTASIS [Suspect]
     Indication: DRY EYE
     Dosage: 2 GTT, BID
     Route: 047
     Dates: start: 201205
  2. COSOPT [Suspect]
     Indication: GLAUCOMA
     Dosage: UNK
     Route: 047
  3. REFRESH TEARS [Concomitant]
     Indication: DRY EYE
     Dosage: 2 GTT, PRN
     Route: 047
  4. LUMIGAN [Concomitant]
     Indication: GLAUCOMA
     Dosage: 2 GTT, UNK
     Route: 047
  5. MECLIZINE                          /00072801/ [Concomitant]
     Indication: SEASONAL ALLERGY
     Dosage: UNK
     Route: 048
  6. FLOMAX                             /00889901/ [Concomitant]
     Indication: PROSTATIC DISORDER
  7. ERYTHROMYCIN [Concomitant]
     Indication: DRY EYE
     Dosage: UNK
  8. SYNTHROID [Concomitant]
     Indication: THYROID DISORDER

REACTIONS (1)
  - Eye irritation [Not Recovered/Not Resolved]
